FAERS Safety Report 15701039 (Version 2)
Quarter: 2020Q1

REPORT INFORMATION
  Report Type: Spontaneous
  Country: BY (occurrence: BY)
  Receive Date: 20181207
  Receipt Date: 20200210
  Transmission Date: 20200409
  Serious: Yes (Other)
  Sender: FDA-Public Use
  Company Number: BY-009507513-1812BLR002440

PATIENT
  Age: 55 Year
  Sex: Male
  Weight: 57 kg

DRUGS (15)
  1. PYRIDOXINE HYDROCHLORIDE. [Concomitant]
     Active Substance: PYRIDOXINE HYDROCHLORIDE
     Dosage: 50 MILLIGRAM
     Dates: start: 20180222, end: 20190123
  2. IMIPENEM AND CILASTATIN [Suspect]
     Active Substance: CILASTATIN SODIUM\IMIPENEM
     Indication: TUBERCULOSIS
     Dosage: 2000 MILLIGRAMS, ONCE DAILY
     Route: 042
     Dates: start: 20180222
  3. AMOXICILLIN SODIUM (+) CLAVULANATE POTASSIUM [Suspect]
     Active Substance: AMOXICILLIN\CLAVULANATE POTASSIUM
     Indication: TUBERCULOSIS
     Dosage: 2500 MILLIGRAMS, QD
     Route: 048
     Dates: start: 20180222
  4. OMEPRAZOLE. [Concomitant]
     Active Substance: OMEPRAZOLE
     Dosage: 20 MILLIGRAM
     Dates: start: 20190823, end: 20190828
  5. PYRIDOXINE HYDROCHLORIDE. [Concomitant]
     Active Substance: PYRIDOXINE HYDROCHLORIDE
     Dosage: 50 MILLIGRAM
     Dates: start: 20190123, end: 20191019
  6. ONDANSETRON [Concomitant]
     Active Substance: ONDANSETRON
     Dosage: UNK
     Dates: start: 20180306, end: 20190123
  7. MOXIFLOXACIN. [Suspect]
     Active Substance: MOXIFLOXACIN
     Indication: TUBERCULOSIS
     Dosage: 400 MILLIGRAM, QD
     Route: 048
     Dates: start: 20180222
  8. OMEPRAZOLE. [Concomitant]
     Active Substance: OMEPRAZOLE
     Dosage: 20 MILLIGRAM
     Dates: start: 20180221, end: 20190123
  9. DELAMANID [Suspect]
     Active Substance: DELAMANID
     Indication: TUBERCULOSIS
     Dosage: 200 MILLIGRAM, QD
     Route: 048
     Dates: start: 20180222
  10. CLOFAZIMINE [Suspect]
     Active Substance: CLOFAZIMINE
     Indication: TUBERCULOSIS
     Dosage: 100 MILLIGRAM, QD
     Route: 048
     Dates: start: 20180222
  11. PHOSPHOLIPIDS (UNSPECIFIED) [Concomitant]
     Dosage: UNK
     Dates: start: 20180222, end: 20191019
  12. FERROUS GLUCONATE [Concomitant]
     Active Substance: FERROUS GLUCONATE
     Dosage: UNK
     Dates: start: 20180603, end: 20190123
  13. LINEZOLID. [Suspect]
     Active Substance: LINEZOLID
     Indication: TUBERCULOSIS
     Dosage: 600 MILLIGRAM, QD
     Route: 048
     Dates: start: 20180222
  14. CAPREOMYCIN [Suspect]
     Active Substance: CAPREOMYCIN
     Indication: TUBERCULOSIS
     Dosage: 1000 MILLIGRAMS, QD
     Route: 030
     Dates: start: 20180222, end: 20180529
  15. CAPREOMYCIN [Suspect]
     Active Substance: CAPREOMYCIN
     Dosage: 1000 MILLIGRAMS, QD
     Route: 030
     Dates: start: 2018, end: 20180907

REACTIONS (13)
  - Dizziness [Unknown]
  - Nephropathy toxic [Not Recovered/Not Resolved]
  - Blood magnesium decreased [Unknown]
  - Blood calcium decreased [Unknown]
  - Asthenia [Unknown]
  - Decreased appetite [Unknown]
  - Creatinine renal clearance decreased [Unknown]
  - Chronic gastritis [Unknown]
  - Blood creatinine increased [Unknown]
  - Platelet count decreased [Unknown]
  - Anaemia [Recovered/Resolved]
  - Visual impairment [Unknown]
  - Faeces discoloured [Unknown]

NARRATIVE: CASE EVENT DATE: 2018
